FAERS Safety Report 18275955 (Version 1)
Quarter: 2020Q3

REPORT INFORMATION
  Report Type: Other
  Country: US (occurrence: US)
  Receive Date: 20200916
  Receipt Date: 20200916
  Transmission Date: 20201103
  Serious: Yes (Death)
  Sender: FDA-Public Use
  Company Number: US-ROCHE-2675673

PATIENT
  Sex: Male

DRUGS (2)
  1. HERCEPTIN [Suspect]
     Active Substance: TRASTUZUMAB
     Indication: METASTASES TO BONE
  2. HERCEPTIN [Suspect]
     Active Substance: TRASTUZUMAB
     Indication: GASTRIC CANCER
     Dosage: INFUNDA 200 MILI GRAMOS INTRAVENOSAMENTE EVERY WEEK
     Route: 041

REACTIONS (4)
  - Thirst decreased [Fatal]
  - Decreased appetite [Fatal]
  - Asthenia [Fatal]
  - Death [Fatal]
